FAERS Safety Report 4323750-4 (Version None)
Quarter: 2004Q1

REPORT INFORMATION
  Report Type: 
  Country: None (occurrence: None)
  Receive Date: 20040323
  Receipt Date: 20040308
  Transmission Date: 20041129
  Serious: Yes (Life-Threatening, Hospitalization, Disabling)
  Sender: FDA-Public Use
  Company Number: GB-JNJFOC-20040302352

PATIENT
  Age: 11 Year
  Sex: Male

DRUGS (3)
  1. RISPERDAL [Suspect]
     Indication: ATTENTION DEFICIT/HYPERACTIVITY DISORDER
     Dosage: 0.5 MG, IN 1 DAY, ORAL
     Route: 048
     Dates: start: 20030917
  2. RISPERDAL [Suspect]
     Indication: PSYCHOMOTOR HYPERACTIVITY
     Dosage: 0.5 MG, IN 1 DAY, ORAL
     Route: 048
     Dates: start: 20030917
  3. RITALIN [Concomitant]

REACTIONS (3)
  - GUILLAIN-BARRE SYNDROME [None]
  - PNEUMONIA [None]
  - UPPER RESPIRATORY TRACT INFECTION [None]
